FAERS Safety Report 25120640 (Version 1)
Quarter: 2025Q1

REPORT INFORMATION
  Report Type: Spontaneous
  Country: CO (occurrence: CO)
  Receive Date: 20250325
  Receipt Date: 20250325
  Transmission Date: 20250409
  Serious: Yes (Other)
  Sender: PRAGMA PHARMACEUTICALS
  Company Number: CO-PRAGMA-2025-CO-000003

PATIENT
  Age: 37 Year
  Sex: Female

DRUGS (1)
  1. CEPHALEXIN [Suspect]
     Active Substance: CEPHALEXIN
     Indication: Antibiotic prophylaxis
     Route: 048

REACTIONS (2)
  - Iris transillumination defect [Unknown]
  - Photophobia [Unknown]
